FAERS Safety Report 6023783-6 (Version None)
Quarter: 2008Q4

REPORT INFORMATION
  Report Type: 
  Country: None (occurrence: None)
  Receive Date: 20081230
  Receipt Date: 20081222
  Transmission Date: 20090506
  Serious: Yes (Other)
  Sender: FDA-Public Use
  Company Number: US-AMGEN-KDL325388

PATIENT
  Sex: Female

DRUGS (7)
  1. ENBREL [Suspect]
     Indication: PSORIATIC ARTHROPATHY
     Route: 064
     Dates: start: 20060613, end: 20060801
  2. METHOTREXATE [Concomitant]
     Route: 064
  3. UNSPECIFIED MEDICATION [Concomitant]
     Route: 064
     Dates: start: 20060901
  4. VITAMIN TAB [Concomitant]
     Route: 064
  5. FOLIC ACID [Concomitant]
     Route: 064
  6. CALCIUM [Concomitant]
     Route: 064
  7. FISH OIL [Concomitant]
     Route: 048

REACTIONS (1)
  - JAUNDICE NEONATAL [None]
